FAERS Safety Report 21886833 (Version 2)
Quarter: 2023Q1

REPORT INFORMATION
  Report Type: Spontaneous
  Country: JP (occurrence: JP)
  Receive Date: 20230119
  Receipt Date: 20230322
  Transmission Date: 20230418
  Serious: Yes (Hospitalization, Other)
  Sender: FDA-Public Use
  Company Number: JP-MSD-M2022-56055

PATIENT
  Sex: Male

DRUGS (1)
  1. KEYTRUDA [Suspect]
     Active Substance: PEMBROLIZUMAB
     Indication: Head and neck cancer
     Dosage: 200 MILLIGRAM, Q3W
     Route: 041

REACTIONS (3)
  - Cytopenia [Unknown]
  - Stevens-Johnson syndrome [Recovering/Resolving]
  - Staphylococcal infection [Unknown]
